FAERS Safety Report 14239215 (Version 1)
Quarter: 2017Q4

REPORT INFORMATION
  Report Type: Spontaneous
  Country: US (occurrence: US)
  Receive Date: 20171127
  Receipt Date: 20171127
  Transmission Date: 20180321
  Serious: No
  Sender: FDA-Public Use
  Company Number: None

PATIENT
  Age: 37 Year
  Sex: Female
  Weight: 63 kg

DRUGS (1)
  1. PROZAC [Suspect]
     Active Substance: FLUOXETINE HYDROCHLORIDE
     Indication: PREMENSTRUAL DYSPHORIC DISORDER
     Dosage: ?          OTHER FREQUENCY:1/DAY 1/2 MONTH;?
     Route: 048

REACTIONS (2)
  - Homicidal ideation [None]
  - Nightmare [None]

NARRATIVE: CASE EVENT DATE: 20171108
